FAERS Safety Report 8227088-4 (Version None)
Quarter: 2012Q1

REPORT INFORMATION
  Report Type: 
  Country: None (occurrence: None)
  Receive Date: 20120322
  Receipt Date: 20120319
  Transmission Date: 20120608
  Serious: No
  Sender: FDA-Public Use
  Company Number: US-PFIZER INC-2012071629

PATIENT
  Sex: Female
  Weight: 53.061 kg

DRUGS (3)
  1. IBUPROFEN (ADVIL) [Suspect]
     Indication: MUSCULOSKELETAL DISCOMFORT
     Dosage: 2 DF, AS NEEDED
     Route: 048
     Dates: start: 20120101, end: 20120101
  2. ACIPHEX [Concomitant]
     Indication: GASTRIC DISORDER
     Dosage: 20 MG, DAILY
  3. VALIUM [Concomitant]
     Indication: OESOPHAGITIS
     Dosage: 5 MG, DAILY

REACTIONS (1)
  - ERYTHEMA [None]
